FAERS Safety Report 7336532-6 (Version None)
Quarter: 2011Q1

REPORT INFORMATION
  Report Type: 
  Country: None (occurrence: None)
  Receive Date: 20110307
  Receipt Date: 20110228
  Transmission Date: 20110831
  Serious: Yes (Hospitalization)
  Sender: FDA-Public Use
  Company Number: US-US-EMD SERONO, INC.-7030165

PATIENT
  Sex: Female

DRUGS (5)
  1. REBIF [Suspect]
     Route: 058
  2. REBIF [Suspect]
     Indication: MULTIPLE SCLEROSIS
     Route: 058
     Dates: start: 20060801, end: 20100701
  3. PATCH [Concomitant]
     Indication: HYPERTENSION
     Dates: end: 20100601
  4. VESICARE [Concomitant]
     Indication: BLADDER DISORDER
     Dates: end: 20100601
  5. REBIF [Suspect]
     Dates: start: 20101130

REACTIONS (3)
  - COLITIS ULCERATIVE [None]
  - SMALL INTESTINAL PERFORATION [None]
  - CLOSTRIDIAL INFECTION [None]
